FAERS Safety Report 13172045 (Version 3)
Quarter: 2017Q2

REPORT INFORMATION
  Report Type: Report from Study
  Country: US (occurrence: US)
  Receive Date: 20170131
  Receipt Date: 20170616
  Transmission Date: 20170830
  Serious: Yes (Death, Hospitalization, Other)
  Sender: FDA-Public Use
  Company Number: US-ALEXION PHARMACEUTICALS INC.-A201700736

PATIENT
  Sex: Female

DRUGS (1)
  1. SOLIRIS [Suspect]
     Active Substance: ECULIZUMAB
     Indication: HAEMOLYTIC URAEMIC SYNDROME
     Dosage: UNK
     Route: 042
     Dates: end: 201704

REACTIONS (6)
  - Moaning [Unknown]
  - Clostridium difficile infection [Fatal]
  - Asthenia [Unknown]
  - Unresponsive to stimuli [Unknown]
  - Abasia [Unknown]
  - Feeding disorder [Unknown]
